FAERS Safety Report 20877347 (Version 1)
Quarter: 2022Q2

REPORT INFORMATION
  Report Type: Report from Study
  Country: AU (occurrence: AU)
  Receive Date: 20220526
  Receipt Date: 20220526
  Transmission Date: 20220721
  Serious: Yes (Death)
  Sender: FDA-Public Use
  Company Number: AU-BIOGEN-2022BI01124678

PATIENT
  Age: 0 Year
  Sex: Male

DRUGS (1)
  1. SPINRAZA [Suspect]
     Active Substance: NUSINERSEN
     Indication: Spinal muscular atrophy
     Dosage: LOADING DOSE
     Route: 024
     Dates: start: 20220429

REACTIONS (1)
  - Death [Fatal]

NARRATIVE: CASE EVENT DATE: 20220515
